FAERS Safety Report 8396657-3 (Version None)
Quarter: 2012Q2

REPORT INFORMATION
  Report Type: 
  Country: None (occurrence: None)
  Receive Date: 20120530
  Receipt Date: 20120524
  Transmission Date: 20120825
  Serious: Yes (Hospitalization)
  Sender: FDA-Public Use
  Company Number: PL-JNJFOC-20110507720

PATIENT
  Sex: Male
  Weight: 94 kg

DRUGS (10)
  1. METHOTREXATE [Suspect]
     Indication: RHEUMATOID ARTHRITIS
     Route: 048
     Dates: start: 20060622, end: 20070710
  2. METHOTREXATE [Concomitant]
     Route: 048
     Dates: start: 20080617
  3. GOLIMUMAB [Suspect]
     Indication: RHEUMATOID ARTHRITIS
     Route: 058
     Dates: start: 20110419
  4. GOLIMUMAB [Suspect]
     Route: 058
     Dates: start: 20070619
  5. FOLIC ACID [Concomitant]
     Route: 048
     Dates: start: 20060622
  6. GOLIMUMAB [Suspect]
     Route: 058
  7. SALMETEROL [Concomitant]
     Indication: RHEUMATOID ARTHRITIS
     Route: 048
     Dates: start: 20050101
  8. IPRATROPIUM BROMIDE [Concomitant]
     Route: 055
     Dates: start: 20100414
  9. GOLIMUMAB [Suspect]
     Route: 058
     Dates: start: 20060718
  10. TORASEMIDUM [Concomitant]
     Route: 048
     Dates: start: 20100423

REACTIONS (3)
  - AORTIC ANEURYSM [None]
  - AORTIC THROMBOSIS [None]
  - LUNG ADENOCARCINOMA METASTATIC [None]
